FAERS Safety Report 23046494 (Version 1)
Quarter: 2023Q4

REPORT INFORMATION
  Report Type: Spontaneous
  Country: IN (occurrence: IN)
  Receive Date: 20231009
  Receipt Date: 20231009
  Transmission Date: 20240109
  Serious: Yes (Other)
  Sender: FDA-Public Use
  Company Number: IN-SUN PHARMACEUTICAL INDUSTRIES LTD-2023R1-411730

PATIENT
  Age: 67 Year
  Sex: Female

DRUGS (2)
  1. DOCETAXEL [Suspect]
     Active Substance: DOCETAXEL
     Indication: Endometrial cancer stage III
     Dosage: 110 MG THRICE WEEKLY/4 CYCLES
     Route: 065
     Dates: start: 202106, end: 202108
  2. CARBOPLATIN [Concomitant]
     Active Substance: CARBOPLATIN
     Indication: Endometrial cancer stage III
     Dosage: (AUC 5)
     Route: 065

REACTIONS (1)
  - Organising pneumonia [Recovered/Resolved]
